FAERS Safety Report 12437683 (Version 1)
Quarter: 2016Q2

REPORT INFORMATION
  Report Type: Spontaneous
  Country: US (occurrence: US)
  Receive Date: 20160606
  Receipt Date: 20160606
  Transmission Date: 20160815
  Serious: No
  Sender: FDA-Public Use
  Company Number: US-ASTRAZENECA-2016SE47087

PATIENT
  Sex: Male

DRUGS (3)
  1. STATIN [Suspect]
     Active Substance: UNSPECIFIED INGREDIENT
     Dosage: 80 MG
     Route: 065
  2. BRILINTA [Suspect]
     Active Substance: TICAGRELOR
     Indication: STENT PLACEMENT
     Route: 048
     Dates: start: 20150220, end: 20160223
  3. BRILINTA [Suspect]
     Active Substance: TICAGRELOR
     Indication: MYOCARDIAL INFARCTION
     Route: 048
     Dates: start: 20150220, end: 20160223

REACTIONS (11)
  - Mental impairment [Unknown]
  - Feeling cold [Recovered/Resolved]
  - Dyspnoea [Recovered/Resolved]
  - Feeling abnormal [Unknown]
  - Sleep apnoea syndrome [Recovered/Resolved]
  - Haemorrhage [Unknown]
  - Increased tendency to bruise [Unknown]
  - Road traffic accident [Unknown]
  - Blood pressure fluctuation [Recovered/Resolved]
  - Poor quality sleep [Recovered/Resolved]
  - Hyperhidrosis [Recovered/Resolved]

NARRATIVE: CASE EVENT DATE: 20160223
